FAERS Safety Report 9484994 (Version 1)
Quarter: 2013Q3

REPORT INFORMATION
  Report Type: Report from Study
  Country: US (occurrence: US)
  Receive Date: 20130828
  Receipt Date: 20130828
  Transmission Date: 20140515
  Serious: No
  Sender: FDA-Public Use
  Company Number: US-ABBOTT-13P-163-1130675-00

PATIENT
  Age: 63 Year
  Sex: Male
  Weight: 108.96 kg

DRUGS (8)
  1. ANDROGEL 1.62% [Suspect]
     Indication: BLOOD TESTOSTERONE DECREASED
     Dosage: TWO PUMPS PER DAY
     Route: 061
     Dates: start: 2012, end: 2013
  2. ANDROGEL 1.62% [Suspect]
     Dosage: FOUR PUMPS PER DAY
     Route: 061
     Dates: start: 2013, end: 201305
  3. ANDROGEL 1.62% [Suspect]
     Dosage: TWO PUMPS PER DAY
     Route: 061
     Dates: start: 201305
  4. METFORMIN [Concomitant]
     Indication: PRODUCT USED FOR UNKNOWN INDICATION
  5. SIMVASTATIN [Concomitant]
     Indication: PRODUCT USED FOR UNKNOWN INDICATION
  6. TRAMADOL [Concomitant]
     Indication: PRODUCT USED FOR UNKNOWN INDICATION
  7. MELOXICAM [Concomitant]
     Indication: PRODUCT USED FOR UNKNOWN INDICATION
  8. HYDROCODONE [Concomitant]
     Indication: PRODUCT USED FOR UNKNOWN INDICATION

REACTIONS (6)
  - Rhinorrhoea [Not Recovered/Not Resolved]
  - Haemoglobin increased [Recovered/Resolved]
  - Night sweats [Not Recovered/Not Resolved]
  - Nervousness [Not Recovered/Not Resolved]
  - Blood testosterone decreased [Unknown]
  - Irritability [Unknown]
